FAERS Safety Report 12364924 (Version 1)
Quarter: 2016Q2

REPORT INFORMATION
  Report Type: Spontaneous
  Country: US (occurrence: US)
  Receive Date: 20160512
  Receipt Date: 20160512
  Transmission Date: 20160815
  Serious: Yes (Death, Hospitalization, Other)
  Sender: FDA-Public Use
  Company Number: US-BAUSCH-BL-2016-011135

PATIENT
  Sex: Male

DRUGS (1)
  1. XIFAXAN [Suspect]
     Active Substance: RIFAXIMIN
     Indication: HEPATIC ENCEPHALOPATHY
     Route: 048
     Dates: start: 2015

REACTIONS (4)
  - Renal failure [Unknown]
  - Hospitalisation [Unknown]
  - Hepatic cirrhosis [Fatal]
  - Ascites [Fatal]

NARRATIVE: CASE EVENT DATE: 2015
